FAERS Safety Report 5346244-6 (Version None)
Quarter: 2007Q2

REPORT INFORMATION
  Report Type: 
  Country: None (occurrence: None)
  Receive Date: 20070420
  Receipt Date: 20060615
  Transmission Date: 20071010
  Serious: No
  Sender: FDA-Public Use
  Company Number: 06P-131-0336228-00

PATIENT
  Age: 15 Year
  Sex: Female

DRUGS (1)
  1. DEPAKOTE [Suspect]
     Indication: BIPOLAR I DISORDER
     Dosage: 500 MG, 1 IN 1 D, PER ORAL
     Route: 048

REACTIONS (1)
  - ARTHRALGIA [None]
